FAERS Safety Report 25994067 (Version 1)
Quarter: 2025Q4

REPORT INFORMATION
  Report Type: Spontaneous
  Country: EU (occurrence: EU)
  Receive Date: 20251104
  Receipt Date: 20251104
  Transmission Date: 20260118
  Serious: Yes (Other)
  Sender: ROCHE
  Company Number: None

PATIENT
  Age: 64 Year
  Sex: Female

DRUGS (4)
  1. RITUXIMAB [Suspect]
     Active Substance: RITUXIMAB
     Indication: Lymphocytic lymphoma
     Dosage: 600MG ON DAY 1
     Route: 042
     Dates: start: 20250721, end: 20250721
  2. RITUXIMAB [Suspect]
     Active Substance: RITUXIMAB
     Dosage: 600MG ON DAY 1
     Route: 042
     Dates: start: 20250811, end: 20250811
  3. BENDAMUSTINE HYDROCHLORIDE [Suspect]
     Active Substance: BENDAMUSTINE HYDROCHLORIDE
     Indication: Lymphocytic lymphoma
     Dosage: 160 MG ON DAYS 1 AND 2
     Route: 042
     Dates: start: 20250721, end: 20250722
  4. BENDAMUSTINE HYDROCHLORIDE [Suspect]
     Active Substance: BENDAMUSTINE HYDROCHLORIDE
     Dosage: 160 MG ON DAYS 1 AND 2
     Route: 042
     Dates: start: 20250811, end: 20250812

REACTIONS (1)
  - Psychomotor skills impaired [Not Recovered/Not Resolved]

NARRATIVE: CASE EVENT DATE: 20250812
